FAERS Safety Report 5508057-1 (Version None)
Quarter: 2007Q4

REPORT INFORMATION
  Report Type: 
  Country: None (occurrence: None)
  Receive Date: 20071106
  Receipt Date: 20071030
  Transmission Date: 20080405
  Serious: Yes (Other)
  Sender: FDA-Public Use
  Company Number: CA-ASTRAZENECA-2007UW15969

PATIENT
  Age: 55 Year
  Sex: Male

DRUGS (7)
  1. CRESTOR [Suspect]
     Route: 048
     Dates: start: 20030101
  2. EZETROL [Concomitant]
     Route: 048
     Dates: start: 20050101
  3. PLAVIX [Concomitant]
     Route: 048
  4. ASPIRIN [Concomitant]
     Route: 048
  5. METOPROLOL [Concomitant]
     Route: 048
  6. AVAPRO [Concomitant]
     Route: 048
  7. LIPITOR [Concomitant]
     Dates: start: 20070301

REACTIONS (3)
  - HAEMATURIA [None]
  - PROTEINURIA [None]
  - TYPE 2 DIABETES MELLITUS [None]
